FAERS Safety Report 8171197 (Version 6)
Quarter: 2014Q4

REPORT INFORMATION
  Report Type: Spontaneous
  Country: US (occurrence: US)
  Receive Date: 20111006
  Receipt Date: 20141115
  Transmission Date: 20150529
  Serious: Yes (Hospitalization, Other)
  Sender: FDA-Public Use
  Company Number: US-ASTRAZENECA-2011SE40341

PATIENT
  Age: 61 Year
  Sex: Female

DRUGS (2)
  1. ARIMIDEX [Suspect]
     Active Substance: ANASTROZOLE
     Route: 048
     Dates: end: 201407
  2. ARIMIDEX [Suspect]
     Active Substance: ANASTROZOLE
     Route: 048
     Dates: end: 201411

REACTIONS (7)
  - Ill-defined disorder [Unknown]
  - Intentional product misuse [Not Recovered/Not Resolved]
  - Neoplasm malignant [Unknown]
  - Breast cancer female [Unknown]
  - Malaise [Unknown]
  - Drug dose omission [Unknown]
  - Hypertension [Unknown]

NARRATIVE: CASE EVENT DATE: 201407
